FAERS Safety Report 5040491-9 (Version None)
Quarter: 2006Q2

REPORT INFORMATION
  Report Type: 
  Country: None (occurrence: None)
  Receive Date: 20060630
  Receipt Date: 20060316
  Transmission Date: 20061013
  Serious: Yes (Life-Threatening, Hospitalization)
  Sender: FDA-Public Use
  Company Number: US-ROCHE-440932

PATIENT
  Age: 45 Year
  Sex: Male

DRUGS (2)
  1. PEGASYS [Suspect]
     Dosage: DOSAGE REPORTED AS 180 WEEKLY. NO UNIT PROVIDED.
     Route: 058
     Dates: start: 20050523, end: 20051031
  2. COPEGUS [Suspect]
     Dosage: REPORTED AS 600 BID. NO UNIT PROVIDED.
     Route: 048
     Dates: start: 20050523, end: 20051031

REACTIONS (10)
  - ALANINE AMINOTRANSFERASE INCREASED [None]
  - ASCITES [None]
  - CHOLECYSTITIS [None]
  - LIVER DISORDER [None]
  - MALAISE [None]
  - NEUTROPHIL COUNT DECREASED [None]
  - PAIN [None]
  - SKIN ULCER [None]
  - THROMBOCYTOPENIA [None]
  - URINARY TRACT INFECTION [None]
